FAERS Safety Report 5829028-1 (Version None)
Quarter: 2008Q3

REPORT INFORMATION
  Report Type: 
  Country: None (occurrence: None)
  Receive Date: 20080731
  Receipt Date: 20080731
  Transmission Date: 20090109
  Serious: Yes (Death, Hospitalization)
  Sender: FDA-Public Use
  Company Number: PHEH1999US05739

PATIENT
  Sex: Female
  Weight: 72 kg

DRUGS (31)
  1. RAD 666 RAD+ [Suspect]
     Indication: LUNG TRANSPLANT
     Dosage: 1.5 MG, BID
     Route: 048
     Dates: start: 19990406, end: 19991209
  2. NEORAL [Suspect]
     Indication: LUNG TRANSPLANT
     Dosage: 50 MG, BID
     Route: 048
     Dates: start: 19990405, end: 19990419
  3. NEORAL [Suspect]
     Dosage: 100 MG, BID
     Route: 048
     Dates: start: 19990420, end: 19990504
  4. NEORAL [Suspect]
     Dosage: 125 MG, BID
     Route: 048
     Dates: start: 19990505, end: 19990615
  5. NEORAL [Suspect]
     Dosage: 150 MG, BID
     Route: 048
     Dates: start: 19990616, end: 19990712
  6. NEORAL [Suspect]
     Dosage: 175 MG, BID
     Route: 048
     Dates: start: 19990713, end: 19990728
  7. NEORAL [Suspect]
     Dosage: 125 MG, BID
     Route: 048
     Dates: start: 19990729, end: 19990921
  8. NEORAL [Suspect]
     Dosage: 50 MG, BID
     Route: 048
     Dates: start: 19990922, end: 19991129
  9. NEORAL [Suspect]
     Dosage: 100 MG, BID
     Route: 048
     Dates: start: 19991130, end: 19991209
  10. NEORAL [Suspect]
     Dosage: 25 MG, BID
     Route: 048
     Dates: start: 19991210, end: 19991222
  11. NEORAL [Suspect]
     Dosage: 50 MG, BID
     Route: 048
     Dates: start: 19991223, end: 19991223
  12. NEORAL [Suspect]
     Dosage: 100 MG, BID
     Route: 048
     Dates: start: 19991224, end: 19991228
  13. PREDNISONE [Suspect]
     Indication: LUNG TRANSPLANT
     Dosage: 10 MG/DAY
     Route: 048
     Dates: start: 19990323, end: 19991217
  14. PREDNISONE [Suspect]
     Dosage: 15 MG/DAY
     Route: 048
     Dates: start: 19990918, end: 19991211
  15. PREDNISONE [Suspect]
     Dosage: 40 MG
     Route: 048
     Dates: start: 19991212
  16. SOLU-CORTEF [Suspect]
     Dosage: 50 MG/DAY
     Route: 042
     Dates: start: 19991209, end: 19991226
  17. SOLU-MEDROL [Suspect]
     Dosage: 500 MG/DAY
     Route: 042
     Dates: start: 19990406, end: 19990406
  18. SOLU-MEDROL [Suspect]
     Dosage: 250 MG/DAY
     Route: 042
     Dates: start: 19990407, end: 19990408
  19. SOLU-MEDROL [Suspect]
     Dosage: 250 MG/DAY
     Route: 042
     Dates: start: 19991208, end: 19991209
  20. SOLU-MEDROL [Suspect]
     Dosage: 500 MG/DAY
     Route: 042
     Dates: start: 19991219, end: 19991221
  21. SOLU-MEDROL [Suspect]
     Dosage: 100 MG/DAY
     Route: 042
     Dates: start: 19991219, end: 19991221
  22. ERYTHROMYCIN [Suspect]
     Dosage: NOT REPORTED
  23. BACTRIM [Suspect]
     Dosage: NOT REPORTED
  24. IMIPENEM [Suspect]
     Dosage: NOT REPORTED
  25. VANCOMYCIN HCL [Suspect]
     Dosage: NOT REPORTED
  26. GANCICLOVIR [Suspect]
     Indication: ANTIVIRAL TREATMENT
     Dosage: NOT REPORTED
  27. CIPRO [Suspect]
     Dosage: NOT REPORTED
  28. AMANTADINE HCL [Suspect]
     Dosage: NOT REPORTED
  29. AMPHOTERICIN B [Suspect]
     Dosage: NOT REPORTED
  30. CELLCEPT [Concomitant]
     Indication: LUNG TRANSPLANT
     Dosage: 500 MG/DAY
     Dates: start: 19990323, end: 19990406
  31. AZATHIOPRINE [Concomitant]
     Indication: LUNG TRANSPLANT
     Dosage: 2 TABLETS/DAY
     Dates: start: 19990406, end: 19991209

REACTIONS (13)
  - ACUTE RESPIRATORY DISTRESS SYNDROME [None]
  - BRADYCARDIA [None]
  - FUNGAEMIA [None]
  - GASTROINTESTINAL HAEMORRHAGE [None]
  - HYPERCAPNIA [None]
  - HYPOTENSION [None]
  - HYPOXIA [None]
  - MULTI-ORGAN FAILURE [None]
  - PNEUMONIA FUNGAL [None]
  - RENAL FAILURE ACUTE [None]
  - RESPIRATORY FAILURE [None]
  - SCEDOSPORIUM INFECTION [None]
  - STRESS ULCER [None]
